FAERS Safety Report 10230170 (Version 1)
Quarter: 2014Q2

REPORT INFORMATION
  Report Type: Spontaneous
  Country: US (occurrence: None)
  Receive Date: 20140610
  Receipt Date: 20140610
  Transmission Date: 20141212
  Serious: No
  Sender: FDA-Public Use
  Company Number: None

PATIENT
  Age: 18 Year
  Sex: Male

DRUGS (3)
  1. DEPAKOTE [Suspect]
     Dosage: BY MOUTH
  2. LAMICTAL [Suspect]
     Dosage: BY MOUTH
  3. ATIVAN [Concomitant]

REACTIONS (2)
  - Oral mucosal eruption [None]
  - Rash erythematous [None]
